FAERS Safety Report 5059457-8 (Version None)
Quarter: 2006Q3

REPORT INFORMATION
  Report Type: 
  Country: None (occurrence: None)
  Receive Date: 20060724
  Receipt Date: 20060713
  Transmission Date: 20061208
  Serious: Yes (Other)
  Sender: FDA-Public Use
  Company Number: PHEH2006US09043

PATIENT
  Sex: Female

DRUGS (1)
  1. TRILEPTAL [Suspect]

REACTIONS (2)
  - BLINDNESS [None]
  - DRUG INEFFECTIVE [None]
